FAERS Safety Report 5345523-6 (Version None)
Quarter: 2007Q2

REPORT INFORMATION
  Report Type: 
  Country: None (occurrence: None)
  Receive Date: 20070531
  Receipt Date: 20070518
  Transmission Date: 20071010
  Serious: Yes (Hospitalization)
  Sender: FDA-Public Use
  Company Number: SPV1-2007-02915

PATIENT
  Age: 12 Year
  Sex: Male
  Weight: 41.7 kg

DRUGS (1)
  1. DAYTRANA [Suspect]
     Indication: ATTENTION DEFICIT/HYPERACTIVITY DISORDER
     Dosage: 20 MG, 1X/DAY; QD,  TRANSDERMAL
     Route: 062
     Dates: start: 20061101, end: 20070504

REACTIONS (1)
  - CONVULSION [None]
